FAERS Safety Report 7982826-0 (Version None)
Quarter: 2011Q4

REPORT INFORMATION
  Report Type: 
  Country: None (occurrence: None)
  Receive Date: 20111215
  Receipt Date: 20111206
  Transmission Date: 20120403
  Serious: Yes (Other)
  Sender: FDA-Public Use
  Company Number: US-BAYER-2011-086005

PATIENT
  Age: 29 Year
  Sex: Female
  Weight: 96.145 kg

DRUGS (2)
  1. YAZ [Suspect]
     Indication: CONTRACEPTION
     Dosage: UNK
     Dates: start: 20080901, end: 20091101
  2. LEVOXYL [Concomitant]
     Indication: THYROID DISORDER

REACTIONS (2)
  - PAIN [None]
  - CHOLECYSTITIS ACUTE [None]
